FAERS Safety Report 7719028-9 (Version None)
Quarter: 2011Q3

REPORT INFORMATION
  Report Type: 
  Country: None (occurrence: None)
  Receive Date: 20110830
  Receipt Date: 20110826
  Transmission Date: 20111222
  Serious: Yes (Other)
  Sender: FDA-Public Use
  Company Number: JP-PFIZER INC-2011157495

PATIENT
  Age: 78 Year
  Sex: Female
  Weight: 45 kg

DRUGS (18)
  1. SIGMART [Concomitant]
     Indication: ANGINA PECTORIS
     Dosage: 5 MG, 2X/DAY
     Route: 048
     Dates: start: 20100926
  2. EQUA [Suspect]
     Indication: DIABETES MELLITUS
     Dosage: 50 MG, DAILY
     Route: 048
     Dates: start: 20110507
  3. ISOSORBIDE MONONITRATE [Concomitant]
     Dosage: 40 MG, DAILY
  4. WARFARIN [Concomitant]
     Indication: THROMBOSIS PROPHYLAXIS
     Dosage: 15 MG, 1X/DAY
     Dates: start: 20101108, end: 20110520
  5. LANSOPRAZOLE [Concomitant]
     Indication: GASTROOESOPHAGEAL REFLUX DISEASE
     Dosage: 15 MG, 1X/DAY
     Route: 048
     Dates: start: 20101108
  6. CRESTOR [Concomitant]
     Indication: HYPERLIPIDAEMIA
     Dosage: 2.5 MG, 1X/DAY
     Route: 048
     Dates: start: 20101108
  7. EPLERENONE [Suspect]
     Indication: CARDIAC FAILURE
  8. AMARYL [Concomitant]
     Indication: DIABETES MELLITUS
     Dosage: 3 MG, DAILY
     Route: 048
  9. EPLERENONE [Suspect]
     Indication: HYPERTENSION
     Dosage: 25 MG, DAILY
     Route: 048
     Dates: start: 20110427, end: 20110628
  10. CARVEDILOL [Concomitant]
     Indication: ANGINA PECTORIS
     Dosage: 1.25 MG, 2X/DAY
     Route: 048
     Dates: start: 20100923
  11. ENALAPRIL MALEATE [Concomitant]
     Indication: HYPERTENSION
     Dosage: 2.5 MG, 1X/DAY
     Route: 048
     Dates: start: 20100929
  12. ASPIRIN [Concomitant]
     Indication: ANGINA PECTORIS
     Dosage: 100 MG, 1X/DAY
     Route: 048
     Dates: start: 20100921
  13. PLAVIX [Suspect]
     Indication: CORONARY ARTERIAL STENT INSERTION
     Dosage: 75 MG, DAILY
     Route: 048
     Dates: start: 20110523
  14. DIART [Concomitant]
     Dosage: 30 MG, 1X/DAY
     Route: 048
     Dates: start: 20110507
  15. AIROCOOL [Concomitant]
     Indication: ANGINA PECTORIS
     Dosage: 20 MG, 2X/DAY
     Route: 048
     Dates: start: 20100922
  16. ENALAPRIL MALEATE [Concomitant]
     Indication: CARDIAC FAILURE
  17. DIART [Concomitant]
     Indication: CARDIAC FAILURE
     Dosage: 60 MG, 1X/DAY
     Route: 048
     Dates: start: 20110427, end: 20110506
  18. BROTIZOLAM [Concomitant]
     Indication: INSOMNIA
     Dosage: 0.25 MG, 1X/DAY
     Route: 048
     Dates: start: 20100926

REACTIONS (4)
  - BONE MARROW FAILURE [None]
  - WHITE BLOOD CELL COUNT DECREASED [None]
  - PYREXIA [None]
  - INFECTION [None]
